FAERS Safety Report 4433048-1 (Version None)
Quarter: 2004Q3

REPORT INFORMATION
  Report Type: 
  Country: None (occurrence: None)
  Receive Date: 20040721
  Receipt Date: 20030711
  Transmission Date: 20050211
  Serious: Yes (Life-Threatening, Hospitalization, Disabling)
  Sender: FDA-Public Use
  Company Number: WAES0307USA01800

PATIENT
  Age: 85 Year
  Sex: Female

DRUGS (2)
  1. VIOXX [Suspect]
     Dosage: PO
     Route: 048
     Dates: end: 20030101
  2. COUMADIN [Concomitant]

REACTIONS (1)
  - GASTROINTESTINAL HAEMORRHAGE [None]
